FAERS Safety Report 5259624-4 (Version None)
Quarter: 2007Q1

REPORT INFORMATION
  Report Type: 
  Country: None (occurrence: None)
  Receive Date: 20070307
  Receipt Date: 20070307
  Transmission Date: 20070707
  Serious: Yes (Other)
  Sender: FDA-Public Use
  Company Number: None

PATIENT
  Sex: Female
  Weight: 99.7913 kg

DRUGS (2)
  1. EFFEXOR XR [Suspect]
     Indication: DEPRESSION
     Dosage: 150 MG  QD  PO
     Route: 048
     Dates: start: 20051015, end: 20060315
  2. EFFEXOR XR [Suspect]
     Indication: DEPRESSION
     Dosage: 75 MG  QD  PO
     Route: 048
     Dates: start: 20060316, end: 20060322

REACTIONS (10)
  - CONJUNCTIVAL HAEMORRHAGE [None]
  - DIZZINESS [None]
  - HAEMANGIOMA [None]
  - HEADACHE [None]
  - HYPERTENSION [None]
  - NAUSEA [None]
  - NERVOUS SYSTEM DISORDER [None]
  - ROSACEA [None]
  - TACHYCARDIA [None]
  - VITREOUS FLOATERS [None]
